FAERS Safety Report 5669938-1 (Version None)
Quarter: 2008Q1

REPORT INFORMATION
  Report Type: 
  Country: None (occurrence: None)
  Receive Date: 20080317
  Receipt Date: 20080305
  Transmission Date: 20080703
  Serious: Yes (Death, Other)
  Sender: FDA-Public Use
  Company Number: US-PFIZER INC-2008022252

PATIENT
  Sex: Male

DRUGS (1)
  1. ZYVOX [Suspect]

REACTIONS (3)
  - DRUG RESISTANCE [None]
  - PNEUMONIA [None]
  - SUDDEN DEATH [None]
